FAERS Safety Report 23197098 (Version 1)
Quarter: 2023Q4

REPORT INFORMATION
  Report Type: Spontaneous
  Country: CN (occurrence: None)
  Receive Date: 20231117
  Receipt Date: 20231117
  Transmission Date: 20240110
  Serious: Yes (Hospitalization, Disabling, Other)
  Sender: FDA-Public Use
  Company Number: 2023A260628

PATIENT
  Age: 13515 Day
  Sex: Male
  Weight: 81 kg

DRUGS (2)
  1. OSIMERTINIB MESYLATE [Suspect]
     Active Substance: OSIMERTINIB MESYLATE
     Indication: Chemotherapy
     Route: 048
     Dates: start: 20231006, end: 20231020
  2. LOBAPLATIN [Suspect]
     Active Substance: LOBAPLATIN
     Indication: Chemotherapy
     Route: 041
     Dates: start: 20230925, end: 20230925

REACTIONS (1)
  - Drug-induced liver injury [Recovering/Resolving]

NARRATIVE: CASE EVENT DATE: 20231020
